FAERS Safety Report 23940290 (Version 3)
Quarter: 2024Q4

REPORT INFORMATION
  Report Type: Spontaneous
  Country: US (occurrence: US)
  Receive Date: 20240605
  Receipt Date: 20241213
  Transmission Date: 20250115
  Serious: No
  Sender: BRISTOL-MYERS SQUIBB COMPANY
  Company Number: US-BRISTOL-MYERS SQUIBB COMPANY-2024-090426

PATIENT
  Age: 63 Year
  Sex: Female

DRUGS (3)
  1. POMALYST [Suspect]
     Active Substance: POMALIDOMIDE
     Indication: Plasma cell myeloma
     Route: 048
  2. POMALYST [Suspect]
     Active Substance: POMALIDOMIDE
     Route: 048
  3. IRON [Suspect]
     Active Substance: IRON
     Indication: Product used for unknown indication

REACTIONS (6)
  - Hypertension [Recovering/Resolving]
  - Asthenia [Unknown]
  - Dry skin [Not Recovered/Not Resolved]
  - Constipation [Unknown]
  - Iron deficiency [Unknown]
  - Faeces discoloured [Unknown]
